FAERS Safety Report 8550873-6 (Version None)
Quarter: 2012Q3

REPORT INFORMATION
  Report Type: 
  Country: None (occurrence: None)
  Receive Date: 20120730
  Receipt Date: 20111019
  Transmission Date: 20120928
  Serious: No
  Sender: FDA-Public Use
  Company Number: US-GLAXOSMITHKLINE-A0949715A

PATIENT
  Sex: Male

DRUGS (7)
  1. PLAVIX [Concomitant]
  2. TRILIPIX [Concomitant]
  3. LIPITOR [Concomitant]
  4. METFORMIN HYDROCHLORIDE [Concomitant]
  5. JANUVIA [Concomitant]
  6. ATIVAN [Concomitant]
  7. ZANTAC [Suspect]
     Indication: DYSPEPSIA
     Dosage: 150MG PER DAY
     Route: 048

REACTIONS (1)
  - THERAPEUTIC RESPONSE DECREASED [None]
